FAERS Safety Report 8214132-3 (Version None)
Quarter: 2012Q1

REPORT INFORMATION
  Report Type: 
  Country: None (occurrence: None)
  Receive Date: 20120316
  Receipt Date: 20120301
  Transmission Date: 20120608
  Serious: Yes (Death, Hospitalization, Other)
  Sender: FDA-Public Use
  Company Number: DE-CELGENEUS-062-21880-11110263

PATIENT
  Age: 74 Year
  Sex: Male
  Weight: 80 kg

DRUGS (4)
  1. PREDNISOLONE [Concomitant]
     Dosage: 20 MILLIGRAM
     Route: 065
  2. REVLIMID [Suspect]
     Dosage: 10 MILLIGRAM
     Route: 048
     Dates: start: 20110801, end: 20111028
  3. REVLIMID [Suspect]
  4. OMEPRAZOLE [Concomitant]
     Dosage: 20 MILLIGRAM
     Route: 065

REACTIONS (5)
  - ANAEMIA [None]
  - SUDDEN DEATH [None]
  - ESCHERICHIA SEPSIS [None]
  - GASTROENTERITIS ESCHERICHIA COLI [None]
  - SOMNOLENCE [None]
